FAERS Safety Report 4288648-9 (Version None)
Quarter: 2004Q1

REPORT INFORMATION
  Report Type: 
  Country: None (occurrence: None)
  Receive Date: 20040205
  Receipt Date: 20040116
  Transmission Date: 20041129
  Serious: Yes (Other)
  Sender: FDA-Public Use
  Company Number: 200328252BWH

PATIENT
  Age: 72 Year
  Sex: Male
  Weight: 102.0593 kg

DRUGS (3)
  1. LEVITRA [Suspect]
     Indication: ERECTILE DYSFUNCTION
     Dosage: 10 MG, ORAL
     Route: 048
  2. VITAMIN NOS [Concomitant]
  3. FLOMAX ^BOEHRINGER INGELHEIM^ [Concomitant]

REACTIONS (9)
  - DRUG INEFFECTIVE [None]
  - DYSPEPSIA [None]
  - FEELING ABNORMAL [None]
  - GINGIVAL PAIN [None]
  - HEADACHE [None]
  - HYPERTONIA [None]
  - HYPOAESTHESIA [None]
  - MUSCLE SPASMS [None]
  - VOMITING [None]
